FAERS Safety Report 23293081 (Version 1)
Quarter: 2023Q4

REPORT INFORMATION
  Report Type: Spontaneous
  Country: US (occurrence: US)
  Receive Date: 20231213
  Receipt Date: 20231213
  Transmission Date: 20240110
  Serious: No
  Sender: FDA-Public Use
  Company Number: US-MYLANLABS-2023M1129805

PATIENT
  Sex: Female

DRUGS (3)
  1. ATORVASTATIN [Interacting]
     Active Substance: ATORVASTATIN
     Indication: Product used for unknown indication
     Dosage: UNK
     Route: 065
  2. IBRANCE [Interacting]
     Active Substance: PALBOCICLIB
     Indication: Breast cancer
     Dosage: 125 MILLIGRAM, QD
     Route: 048
     Dates: start: 20230906
  3. IBRANCE [Interacting]
     Active Substance: PALBOCICLIB
     Dosage: 100 MILLIGRAM, QD ( DAILY FOR 21 DAYS AND OFF 7 DAYS WITH LETROZOLE)
     Route: 048
     Dates: start: 20230925

REACTIONS (1)
  - Drug interaction [Unknown]
